FAERS Safety Report 4496836-1 (Version None)
Quarter: 2004Q4

REPORT INFORMATION
  Report Type: 
  Country: None (occurrence: None)
  Receive Date: 20041109
  Receipt Date: 20041105
  Transmission Date: 20050328
  Serious: Yes (Hospitalization)
  Sender: FDA-Public Use
  Company Number: US-GLAXOSMITHKLINE-A0532873A

PATIENT

DRUGS (6)
  1. EPIVIR [Suspect]
     Indication: HIV INFECTION
     Dosage: 300MG TWICE PER DAY
     Route: 048
     Dates: start: 19980101
  2. VIRACEPT [Concomitant]
  3. STAVUDINE [Concomitant]
  4. MS CONTIN [Concomitant]
  5. VALIUM [Concomitant]
  6. TRAZODONE HCL [Concomitant]

REACTIONS (4)
  - AGGRESSION [None]
  - FAT REDISTRIBUTION [None]
  - INGROWING NAIL [None]
  - NAIL DISORDER [None]
